FAERS Safety Report 8460661-7 (Version None)
Quarter: 2012Q2

REPORT INFORMATION
  Report Type: 
  Country: None (occurrence: None)
  Receive Date: 20120622
  Receipt Date: 20120611
  Transmission Date: 20120825
  Serious: Yes (Hospitalization)
  Sender: FDA-Public Use
  Company Number: FR-ROCHE-771357

PATIENT
  Sex: Male
  Weight: 96 kg

DRUGS (6)
  1. CELLCEPT [Suspect]
     Indication: RENAL TRANSPLANT
     Route: 002
     Dates: start: 20101218
  2. CELLCEPT [Suspect]
     Route: 002
     Dates: start: 20101218
  3. CYCLOSPORINE [Suspect]
     Indication: RENAL TRANSPLANT
     Route: 002
     Dates: start: 20101218
  4. CYCLOSPORINE [Suspect]
     Route: 002
     Dates: start: 20101218
  5. CELLCEPT [Suspect]
     Route: 002
  6. PREDNISONE [Suspect]
     Indication: RENAL TRANSPLANT
     Route: 048
     Dates: start: 20101218

REACTIONS (6)
  - ANAEMIA [None]
  - GAIT DISTURBANCE [None]
  - LUMBAR SPINAL STENOSIS [None]
  - ASTHENIA [None]
  - NEURALGIA [None]
  - NEUROPATHY PERIPHERAL [None]
